FAERS Safety Report 11966253 (Version 1)
Quarter: 2016Q1

REPORT INFORMATION
  Report Type: Spontaneous
  Country: IL (occurrence: None)
  Receive Date: 20160126
  Receipt Date: 20160126
  Transmission Date: 20160526
  Serious: No
  Sender: FDA-Public Use
  Company Number: None

PATIENT
  Age: 57 Year
  Sex: Female
  Weight: 58 kg

DRUGS (2)
  1. LYRICA [Concomitant]
     Active Substance: PREGABALIN
  2. CYMBALTA [Suspect]
     Active Substance: DULOXETINE HYDROCHLORIDE
     Indication: INTERVERTEBRAL DISC DISORDER
     Dosage: 1 PILL ONCE DAILY TAKEN BY MOUTH
     Route: 048
     Dates: start: 20151118, end: 20151218

REACTIONS (3)
  - Skin discolouration [None]
  - Acne [None]
  - Seborrhoeic keratosis [None]

NARRATIVE: CASE EVENT DATE: 20151119
